FAERS Safety Report 4276580-6 (Version None)
Quarter: 2004Q1

REPORT INFORMATION
  Report Type: 
  Country: None (occurrence: None)
  Receive Date: 20040121
  Receipt Date: 20031119
  Transmission Date: 20041129
  Serious: Yes (Hospitalization, Other)
  Sender: FDA-Public Use
  Company Number: WAES 0311NZL00027

PATIENT
  Age: 36 Year
  Sex: Female
  Weight: 62 kg

DRUGS (8)
  1. [THERAPY UNSPECIFIED] [Concomitant]
     Indication: ASTHMA
  2. FOSAMAX [Suspect]
     Indication: OSTEOPOROSIS
     Route: 048
     Dates: start: 19990101
  3. FOSAMAX [Suspect]
     Route: 048
     Dates: start: 20030101, end: 20030901
  4. FOSAMAX [Suspect]
     Route: 048
     Dates: end: 20030101
  5. FOSAMAX [Suspect]
     Route: 048
  6. NIACIN [Concomitant]
  7. PREDNISONE [Concomitant]
  8. VITAMINS (UNSPECIFIED) [Concomitant]

REACTIONS (6)
  - CONVULSION [None]
  - DIALYSIS [None]
  - MEDICATION ERROR [None]
  - PANCREATIC PSEUDOCYST [None]
  - PANCREATITIS [None]
  - RENAL DISORDER [None]
